FAERS Safety Report 6741064-X (Version None)
Quarter: 2010Q2

REPORT INFORMATION
  Report Type: 
  Country: None (occurrence: None)
  Receive Date: 20100525
  Receipt Date: 20100525
  Transmission Date: 20101027
  Serious: Yes (Life-Threatening, Hospitalization, Other)
  Sender: FDA-Public Use
  Company Number: None

PATIENT
  Age: 24 Year
  Sex: Female
  Weight: 56.6996 kg

DRUGS (5)
  1. TEGRETOL [Suspect]
     Indication: BIPOLAR DISORDER
     Route: 048
     Dates: start: 19940415, end: 19940416
  2. HALDOL [Concomitant]
  3. BENADRYL [Concomitant]
  4. COGENTIN [Concomitant]
  5. LITHIUM [Concomitant]

REACTIONS (2)
  - GRAND MAL CONVULSION [None]
  - SIMILAR REACTION ON PREVIOUS EXPOSURE TO DRUG [None]
